FAERS Safety Report 6032740-5 (Version None)
Quarter: 2008Q4

REPORT INFORMATION
  Report Type: 
  Country: None (occurrence: None)
  Receive Date: 20081224
  Receipt Date: 20080925
  Transmission Date: 20090506
  Serious: No
  Sender: FDA-Public Use
  Company Number: 2008PV036787

PATIENT
  Age: 70 Year
  Sex: Female

DRUGS (5)
  1. SYMLIN [Suspect]
     Indication: DIABETES MELLITUS
     Dosage: 60 MCG;BID;SC
     Route: 058
     Dates: start: 20080626
  2. SYMLIN [Suspect]
     Indication: WEIGHT DECREASED
     Dosage: 60 MCG;BID;SC
     Route: 058
     Dates: start: 20080626
  3. HUMULIN N [Concomitant]
  4. HUMULIN R [Concomitant]
  5. GLIPIZIDE [Concomitant]

REACTIONS (4)
  - ABDOMINAL DISTENSION [None]
  - BLOOD GLUCOSE DECREASED [None]
  - BLOOD GLUCOSE INCREASED [None]
  - DRUG INEFFECTIVE [None]
